FAERS Safety Report 7384853-3 (Version None)
Quarter: 2011Q1

REPORT INFORMATION
  Report Type: 
  Country: None (occurrence: None)
  Receive Date: 20110330
  Receipt Date: 20110316
  Transmission Date: 20110831
  Serious: Yes (Other)
  Sender: FDA-Public Use
  Company Number: ZA-JNJFOC-20110306974

PATIENT
  Sex: Female

DRUGS (3)
  1. AZAPRESS [Concomitant]
  2. REVELLEX [Suspect]
     Indication: PRODUCT USED FOR UNKNOWN INDICATION
     Route: 042
  3. REVELLEX [Suspect]
     Dosage: 2ND INFUSION
     Route: 042

REACTIONS (1)
  - TUBERCULOSIS [None]
